FAERS Safety Report 21387900 (Version 1)
Quarter: 2022Q3

REPORT INFORMATION
  Report Type: Spontaneous
  Country: US (occurrence: US)
  Receive Date: 20220928
  Receipt Date: 20220928
  Transmission Date: 20221026
  Serious: No
  Sender: FDA-Public Use
  Company Number: US-MYLANLABS-2022M1097211

PATIENT
  Sex: Male
  Weight: 20.41 kg

DRUGS (1)
  1. METHYLPHENIDATE [Suspect]
     Active Substance: METHYLPHENIDATE
     Indication: Relaxation therapy
     Dosage: 10 MILLIGRAM
     Route: 062
     Dates: start: 20220905

REACTIONS (3)
  - Therapeutic product effect delayed [Unknown]
  - Product use issue [Unknown]
  - Therapeutic product ineffective [Unknown]
